FAERS Safety Report 20329457 (Version 1)
Quarter: 2022Q1

REPORT INFORMATION
  Report Type: Spontaneous
  Country: US (occurrence: US)
  Receive Date: 20220112
  Receipt Date: 20220112
  Transmission Date: 20220423
  Serious: No
  Sender: FDA-Public Use
  Company Number: US-GILEAD-2022-0565149

PATIENT
  Sex: Female

DRUGS (7)
  1. BIKTARVY [Suspect]
     Active Substance: BICTEGRAVIR SODIUM\EMTRICITABINE\TENOFOVIR ALAFENAMIDE FUMARATE
     Indication: HIV infection
     Dosage: 1 DOSAGE FORM, QD
     Route: 048
  2. ESTROGEL [Concomitant]
     Active Substance: ESTRADIOL
  3. IRON [Concomitant]
     Active Substance: IRON
  4. CHOLECALCIFEROL [Concomitant]
     Active Substance: CHOLECALCIFEROL
  5. GINGER [Concomitant]
     Active Substance: GINGER
  6. LUPRON DEPOT [Concomitant]
     Active Substance: LEUPROLIDE ACETATE
  7. NORETHINDRONE [NORETHISTERONE ACETATE] [Concomitant]

REACTIONS (1)
  - Product dose omission issue [Unknown]
